FAERS Safety Report 8198641-1 (Version None)
Quarter: 2012Q1

REPORT INFORMATION
  Report Type: 
  Country: None (occurrence: None)
  Receive Date: 20120309
  Receipt Date: 20120118
  Transmission Date: 20120608
  Serious: No
  Sender: FDA-Public Use
  Company Number: US-AMGEN-USASP2012003630

PATIENT
  Age: 70 Year
  Sex: Female
  Weight: 49.9 kg

DRUGS (9)
  1. LISINOPRIL [Concomitant]
     Dosage: UNK
  2. MULTI-VITAMINS [Concomitant]
     Dosage: UNK
  3. SYNTHROID [Concomitant]
     Dosage: UNK
  4. PROLIA [Suspect]
     Indication: OSTEOPOROSIS POSTMENOPAUSAL
     Dosage: 60 MG, Q6MO
     Route: 058
     Dates: start: 20110705
  5. PRAVACHOL [Concomitant]
     Dosage: UNK
  6. LANTUS [Concomitant]
     Dosage: 22 UNIT, QD
  7. HUMALOG [Concomitant]
     Dosage: UNK
  8. CALCIUM + VITAMIN D [Concomitant]
     Dosage: UNK
  9. LOVAZA [Concomitant]
     Dosage: UNK

REACTIONS (3)
  - ANIMAL SCRATCH [None]
  - BACK PAIN [None]
  - CYSTITIS [None]
